FAERS Safety Report 7420157-8 (Version None)
Quarter: 2011Q2

REPORT INFORMATION
  Report Type: 
  Country: None (occurrence: None)
  Receive Date: 20110418
  Receipt Date: 20110407
  Transmission Date: 20111010
  Serious: Yes (Hospitalization)
  Sender: FDA-Public Use
  Company Number: US-SANOFI-AVENTIS-2011SA022188

PATIENT
  Age: 79 Year
  Sex: Male

DRUGS (19)
  1. FUROSEMIDE [Concomitant]
  2. POTASSIUM CHLORIDE [Concomitant]
  3. TAMSULOSIN [Concomitant]
  4. BENAZEPRIL HYDROCHLORIDE [Concomitant]
  5. OMEPRAZOLE [Concomitant]
  6. VYTORIN [Concomitant]
  7. DEXAMETHASONE [Concomitant]
  8. CAPECITABINE [Suspect]
     Dosage: 1500MG IN THE MORNING AND 2000 MG IN THE EVENING
     Route: 048
     Dates: start: 20110308, end: 20110321
  9. AMLODIPINE [Concomitant]
  10. FIBERCON [Concomitant]
  11. ACETAMINOPHEN [Concomitant]
  12. LORAZEPAM [Concomitant]
  13. METOPROLOL [Concomitant]
  14. ZOFRAN [Concomitant]
  15. LOVENOX [Concomitant]
  16. ZANTAC [Concomitant]
  17. COMPAZINE [Concomitant]
  18. OXALIPLATIN [Suspect]
     Route: 042
     Dates: start: 20110308, end: 20110308
  19. BEVACIZUMAB [Suspect]
     Route: 042
     Dates: start: 20110308, end: 20110308

REACTIONS (1)
  - DIVERTICULAR PERFORATION [None]
